FAERS Safety Report 9683529 (Version 2)
Quarter: 2013Q4

REPORT INFORMATION
  Report Type: Spontaneous
  Country: IN (occurrence: IN)
  Receive Date: 20131112
  Receipt Date: 20131226
  Transmission Date: 20140711
  Serious: Yes (Death, Other)
  Sender: FDA-Public Use
  Company Number: PHHY2013IN128253

PATIENT
  Sex: Female

DRUGS (4)
  1. CICLOSPORIN [Suspect]
  2. PREDNISOLONE [Suspect]
     Dosage: 1 MG/KG, PER DAY
  3. METHOTREXATE [Suspect]
     Route: 048
  4. CYCLOPHOSPHAMIDE [Suspect]

REACTIONS (4)
  - Staphylococcal sepsis [Fatal]
  - Pyrexia [Unknown]
  - Rash [Unknown]
  - Drug ineffective [Unknown]
